FAERS Safety Report 24857856 (Version 1)
Quarter: 2025Q1

REPORT INFORMATION
  Report Type: Spontaneous
  Country: IN (occurrence: IN)
  Receive Date: 20250117
  Receipt Date: 20250117
  Transmission Date: 20250409
  Serious: Yes (Other)
  Sender: SANDOZ
  Company Number: IN-SANDOZ-SDZ2024IN060796

PATIENT
  Sex: Male

DRUGS (3)
  1. MYFORTIC [Suspect]
     Active Substance: MYCOPHENOLATE SODIUM
     Indication: Renal transplant
     Dosage: 360 MG (2-0-1)
     Route: 048
  2. TACROLIMUS [Suspect]
     Active Substance: TACROLIMUS
     Dosage: 1 MG, BID
     Route: 048
  3. TACROLIMUS [Suspect]
     Active Substance: TACROLIMUS
     Indication: Renal transplant
     Route: 048

REACTIONS (8)
  - Renal tubular necrosis [Unknown]
  - Chronic allograft nephropathy [Unknown]
  - Diabetes mellitus [Unknown]
  - Vitamin D decreased [Unknown]
  - Haemoglobin decreased [Unknown]
  - Low density lipoprotein decreased [Unknown]
  - Hypertriglyceridaemia [Unknown]
  - Hypertension [Unknown]
